FAERS Safety Report 6203165-4 (Version None)
Quarter: 2009Q2

REPORT INFORMATION
  Report Type: 
  Country: None (occurrence: None)
  Receive Date: 20090526
  Receipt Date: 20090526
  Transmission Date: 20091009
  Serious: Yes (Death, Hospitalization)
  Sender: FDA-Public Use
  Company Number: None

PATIENT
  Sex: Male
  Weight: 99.9 kg

DRUGS (5)
  1. CISPLATIN [Suspect]
     Dosage: 53 MG
     Dates: end: 20090421
  2. TAXOL [Suspect]
     Dosage: 105 MG
     Dates: end: 20090421
  3. ALBUTEROL [Concomitant]
  4. BUDESONIDE [Concomitant]
  5. CLONIDINE [Concomitant]

REACTIONS (1)
  - RESPIRATORY FAILURE [None]
